FAERS Safety Report 4942676-6 (Version None)
Quarter: 2006Q1

REPORT INFORMATION
  Report Type: 
  Country: None (occurrence: None)
  Receive Date: 20060222
  Receipt Date: 20060203
  Transmission Date: 20060701
  Serious: Yes (Other)
  Sender: FDA-Public Use
  Company Number: 200512035BBE

PATIENT
  Age: 35 Year
  Sex: Female
  Weight: 88.5 kg

DRUGS (5)
  1. GAMIMUNE N 10% [Suspect]
     Indication: BRONCHOSPASM
     Dosage: 20 G, INTRAVENOUS
     Route: 042
     Dates: start: 20050915
  2. PREDNISONE [Concomitant]
  3. FLOVENT [Concomitant]
  4. OXEZE TURBUHALER [Concomitant]
  5. VENTOLIN [Concomitant]

REACTIONS (10)
  - BRONCHOSPASM [None]
  - CHEST DISCOMFORT [None]
  - CHILLS [None]
  - CONDITION AGGRAVATED [None]
  - HEADACHE [None]
  - NAUSEA [None]
  - SENSATION OF FOREIGN BODY [None]
  - SENSE OF OPPRESSION [None]
  - THROAT TIGHTNESS [None]
  - VOMITING [None]
